FAERS Safety Report 7245220-6 (Version None)
Quarter: 2011Q1

REPORT INFORMATION
  Report Type: 
  Country: None (occurrence: None)
  Receive Date: 20110126
  Receipt Date: 20101217
  Transmission Date: 20110831
  Serious: Yes (Hospitalization)
  Sender: FDA-Public Use
  Company Number: DE-PFIZER INC-DE-WYE-G05756510

PATIENT
  Sex: Female

DRUGS (96)
  1. PANTOZOL [Suspect]
     Dosage: 20.0 UNK, 2X/DAY
     Route: 048
     Dates: start: 20070905
  2. COMBACTAM [Suspect]
     Indication: PSOAS ABSCESS
     Dosage: 1.0 G, 2X/DAY
     Route: 042
     Dates: start: 20070828, end: 20070828
  3. DIPIDOLOR [Suspect]
     Indication: PAIN
     Dosage: 2.0 MG, 3X/DAY
     Route: 042
     Dates: start: 20070828, end: 20070828
  4. HYDROCHLOROTHIAZIDE [Suspect]
     Indication: POLYURIA
     Dosage: 25.0 MG, 1X/DAY
     Route: 048
     Dates: start: 20070907, end: 20070911
  5. TRAMAL [Suspect]
     Indication: PAIN
     Dosage: 20.0 GTT, 2X/DAY
     Route: 048
     Dates: start: 20070908, end: 20070909
  6. DIAZEPAM [Concomitant]
     Dosage: UNK
     Route: 042
     Dates: start: 20070828, end: 20070828
  7. HEPARIN [Concomitant]
     Dosage: UNK
     Route: 042
     Dates: start: 20070828, end: 20070828
  8. KALINOR [Concomitant]
     Dosage: UNK
     Route: 042
     Dates: start: 20070828, end: 20070913
  9. PROPOFOL [Concomitant]
     Dosage: UNK
     Route: 042
     Dates: start: 20070828, end: 20070831
  10. TAVOR [Suspect]
     Indication: RESTLESSNESS
     Dosage: 1.0 MG, 1X/DAY
     Route: 048
     Dates: start: 20070907, end: 20070914
  11. TAVOR [Suspect]
     Dosage: 1.0 MG, 1X/DAY
     Route: 048
     Dates: start: 20070922, end: 20070922
  12. HYDROCORTISONE SODIUM SUCCINATE [Suspect]
     Dosage: UNK
     Route: 042
     Dates: start: 20070907, end: 20070914
  13. CATAPRESAN [Suspect]
     Dosage: 150.0 MG, 3X/DAY
     Route: 048
     Dates: start: 20070912
  14. RIFAMPICIN [Suspect]
     Indication: PSOAS ABSCESS
     Dosage: 600.0 MG, 1X/DAY
     Route: 042
     Dates: start: 20070901, end: 20070916
  15. BELOC ZOK [Suspect]
     Indication: HYPERTENSION
     Dosage: 1.0 DF, 2X/DAY
     Route: 048
     Dates: start: 20070902
  16. ALDACTONE [Suspect]
     Indication: HYPERTENSION
     Dosage: 100.0 MG, 1X/DAY
     Route: 065
     Dates: start: 20070903, end: 20070903
  17. DIOVAN [Suspect]
     Indication: HYPERTENSION
     Dosage: 80.0 MG, 1X/DAY
     Route: 048
     Dates: start: 20070907, end: 20070912
  18. ADALAT [Suspect]
     Indication: HYPERTENSION
     Dosage: UNK
     Route: 048
     Dates: start: 20070911, end: 20070914
  19. HETASTARCH [Concomitant]
     Dosage: UNK
     Route: 042
     Dates: start: 20070828, end: 20070829
  20. EUGALAC [Concomitant]
     Dosage: UNK
     Route: 048
     Dates: start: 20070904, end: 20070905
  21. METOCLOPRAMIDE [Concomitant]
     Dosage: UNK
     Route: 042
     Dates: start: 20070828, end: 20070901
  22. MULTIBIONTA [Concomitant]
     Dosage: UNK
     Route: 042
     Dates: start: 20070902, end: 20070902
  23. POTASSIUM CHLORIDE [Concomitant]
     Dosage: UNK
     Route: 048
     Dates: start: 20070912, end: 20070920
  24. SUFENTA PRESERVATIVE FREE [Concomitant]
     Dosage: UNK
     Route: 042
     Dates: start: 20070829, end: 20070829
  25. ROCEPHIN [Suspect]
     Indication: PSOAS ABSCESS
     Dosage: 2.0 G, 2X/DAY
     Route: 042
     Dates: start: 20070828, end: 20070831
  26. DIPIDOLOR [Suspect]
     Dosage: 2.0 MG, 4X/DAY
     Route: 042
     Dates: start: 20070908, end: 20070909
  27. STAPHYLEX [Suspect]
     Indication: PSOAS ABSCESS
     Dosage: 2.0 G, 3X/DAY
     Route: 042
     Dates: start: 20070831, end: 20070916
  28. INSULIN [Suspect]
     Indication: HYPERGLYCAEMIA
     Dosage: UNK
     Route: 058
     Dates: start: 20070905, end: 20070914
  29. MUCOSOLVAN [Suspect]
     Dosage: UNK
     Route: 042
     Dates: start: 20070907, end: 20070912
  30. MUCOSOLVAN [Suspect]
     Dosage: 15.0 MG, 3X/DAY
     Route: 048
     Dates: start: 20070913
  31. SAROTEN [Suspect]
     Indication: PAIN
     Dosage: 75.0 MG, 1X/DAY
     Route: 048
     Dates: start: 20070907, end: 20070914
  32. AMINO ACIDS NOS [Concomitant]
     Dosage: UNK
     Route: 042
     Dates: start: 20070828, end: 20070828
  33. FENISTIL [Concomitant]
     Dosage: UNK
     Route: 042
     Dates: start: 20070908, end: 20070908
  34. GLYCERYL TRINITRATE [Concomitant]
     Dosage: UNK
     Route: 055
     Dates: start: 20070917, end: 20070917
  35. MORONAL [Concomitant]
     Dosage: UNK
     Route: 065
     Dates: start: 20070914, end: 20070918
  36. ACETYLCYSTEINE [Suspect]
     Dosage: 300.0 MG, 3X/DAY
     Route: 048
     Dates: start: 20070828, end: 20070828
  37. CATAPRESAN [Suspect]
     Indication: HYPERTENSION
     Dosage: UNK
     Route: 042
     Dates: start: 20070830, end: 20070831
  38. CYANOCOBALAMIN [Concomitant]
     Dosage: UNK
     Route: 042
     Dates: start: 20090902, end: 20090902
  39. HETASTARCH [Concomitant]
     Dosage: UNK
     Route: 042
     Dates: start: 20070907, end: 20070913
  40. ARTERENOL [Concomitant]
     Dosage: UNK
     Route: 042
     Dates: start: 20070828, end: 20070831
  41. POTASSIUM CHLORIDE [Concomitant]
     Dosage: UNK
     Route: 042
     Dates: start: 20070828, end: 20070913
  42. SODIUM CHLORIDE [Concomitant]
  43. EBRANTIL [Concomitant]
     Dosage: UNK
     Route: 042
     Dates: start: 20070831, end: 20070901
  44. TAVOR [Suspect]
     Dosage: 1.0 MG, 1X/DAY
     Route: 048
     Dates: start: 20070918, end: 20070918
  45. TAVOR [Suspect]
     Dosage: 1.0 MG, 1X/DAY
     Route: 048
     Dates: start: 20070920, end: 20070920
  46. HYDROCORTISONE SODIUM SUCCINATE [Suspect]
     Dosage: UNK
     Route: 042
     Dates: start: 20070829, end: 20070901
  47. PIPERACILLIN [Suspect]
     Indication: PSOAS ABSCESS
     Dosage: 4.0 G, 2X/DAY
     Route: 042
     Dates: start: 20070828, end: 20070828
  48. BERODUAL [Suspect]
     Indication: OBSTRUCTIVE AIRWAYS DISORDER
     Dosage: 2.0 DF, 2X/DAY
     Route: 055
     Dates: start: 20070906
  49. DICLAC [Suspect]
     Indication: PAIN
     Dosage: 75.0 MG, 2X/DAY
     Route: 048
     Dates: start: 20070908, end: 20070912
  50. CLEXANE [Suspect]
     Indication: THROMBOSIS PROPHYLAXIS
     Dosage: UNK
     Route: 058
     Dates: start: 20070908
  51. FOLIC ACID [Concomitant]
     Dosage: UNK
     Route: 042
     Dates: start: 20070902, end: 20070902
  52. INSUMAN [Concomitant]
     Dosage: UNK
     Route: 042
     Dates: start: 20070828, end: 20070828
  53. INZOLEN [Concomitant]
     Dosage: UNK
     Route: 042
     Dates: start: 20070912, end: 20070914
  54. MAGNETRANS [Concomitant]
     Dosage: UNK
     Route: 048
     Dates: start: 20070911, end: 20070911
  55. PERFALGAN [Concomitant]
     Dosage: UNK
     Route: 042
     Dates: start: 20070924, end: 20070924
  56. SOLU-DECORTIN-H [Concomitant]
     Dosage: UNK
     Route: 042
     Dates: start: 20070920, end: 20070920
  57. PANTOZOL [Suspect]
     Dosage: 40.0 MG, 1X/DAY
     Route: 042
     Dates: start: 20070828, end: 20070901
  58. DIPIDOLOR [Suspect]
     Dosage: 3.0 MG, 3X/DAY
     Route: 042
     Dates: start: 20070830, end: 20070905
  59. ACETYLCYSTEINE [Suspect]
     Dosage: 600.0 MG, 2X/DAY
     Route: 042
     Dates: start: 20070829, end: 20070829
  60. ACETYLCYSTEINE [Suspect]
     Dosage: 300.0 MG, 2X/DAY
     Route: 048
     Dates: start: 20070905, end: 20070918
  61. ACETAMINOPHEN [Suspect]
     Indication: PYREXIA
     Dosage: UNK
     Route: 048
     Dates: start: 20070912, end: 20070916
  62. CLINDAMYCIN [Concomitant]
     Dosage: UNK
     Route: 042
     Dates: start: 20070828, end: 20070831
  63. HALDOL [Concomitant]
     Dosage: UNK
     Route: 042
     Dates: start: 20070828, end: 20070828
  64. EMBOLEX [Concomitant]
     Dosage: UNK
     Route: 058
     Dates: start: 20070830, end: 20070907
  65. INSULIN GLARGINE [Concomitant]
     Dosage: UNK
     Route: 058
     Dates: start: 20070902, end: 20070902
  66. JONOSTERIL [Concomitant]
     Dosage: UNK
     Route: 042
     Dates: start: 20070906, end: 20070911
  67. JONOSTERIL [Concomitant]
     Dosage: UNK
     Route: 042
     Dates: start: 20070920, end: 20070921
  68. VITAMIN B [Concomitant]
     Dosage: UNK
     Route: 042
     Dates: start: 20070911, end: 20070911
  69. NOVALGIN [Suspect]
     Indication: PAIN
     Dosage: 1.0 G, 3X/DAY
     Route: 065
     Dates: start: 20070829, end: 20070914
  70. NOVALGIN [Suspect]
     Dosage: 30.0 GTT, 1X/DAY
     Route: 048
     Dates: start: 20070923, end: 20070925
  71. CLINDAMYCIN [Concomitant]
     Dosage: UNK
     Route: 048
     Dates: start: 20070920
  72. LASIX [Concomitant]
     Dosage: UNK
     Route: 065
     Dates: start: 20070828, end: 20070905
  73. ACTRAPID MC [Concomitant]
     Dosage: UNK
     Route: 042
     Dates: start: 20070829, end: 20070905
  74. NEOSTIGMINE [Concomitant]
     Dosage: UNK
     Route: 042
     Dates: start: 20070829, end: 20070901
  75. PERFALGAN [Concomitant]
     Dosage: UNK
     Route: 042
     Dates: start: 20070902, end: 20070903
  76. DOLANTIN [Concomitant]
     Dosage: UNK
     Route: 042
     Dates: start: 20070902, end: 20070902
  77. PHYTOMENADIONE [Concomitant]
     Dosage: UNK
     Route: 042
     Dates: start: 20070902, end: 20070902
  78. KALINOR [Concomitant]
     Dosage: UNK
     Route: 048
     Dates: start: 20070912, end: 20070920
  79. PREDNISOLONE [Concomitant]
     Dosage: UNK
     Route: 048
     Dates: start: 20070921, end: 20070924
  80. NORVASC [Suspect]
     Dosage: 10.0 MG, 1X/DAY
     Route: 048
     Dates: start: 20070902
  81. TRAMAL [Suspect]
     Dosage: 20.0 GTT, 3X/DAY
     Route: 048
     Dates: start: 20070912, end: 20070913
  82. LEVOTHYROXINE SODIUM [Suspect]
     Indication: HYPOTHYROIDISM
     Dosage: 75.0 UG, 1X/DAY
     Route: 048
     Dates: start: 20070910
  83. AVELOX [Suspect]
     Indication: PSOAS ABSCESS
     Dosage: 400.0 MG, 1X/DAY
     Route: 048
     Dates: start: 20070916, end: 20070919
  84. TPN ELECTROLYTES IN PLASTIC CONTAINER [Concomitant]
     Dosage: UNK
     Route: 042
     Dates: start: 20070903, end: 20070905
  85. TPN ELECTROLYTES IN PLASTIC CONTAINER [Concomitant]
     Dosage: UNK
     Route: 042
     Dates: start: 20070829, end: 20070831
  86. CLINDAMYCIN HCL [Concomitant]
     Dosage: UNK
     Route: 042
     Dates: start: 20070828, end: 20070828
  87. FENISTIL [Concomitant]
     Dosage: UNK
     Route: 048
     Dates: start: 20070919
  88. JONOSTERIL [Concomitant]
     Dosage: UNK
     Route: 042
     Dates: start: 20070914, end: 20070916
  89. JONOSTERIL [Concomitant]
     Dosage: UNK
     Route: 042
     Dates: start: 20070828, end: 20070903
  90. BELOC [Concomitant]
     Dosage: UNK
     Route: 042
     Dates: start: 20070828, end: 20070828
  91. BELOC [Concomitant]
     Dosage: UNK
     Route: 042
     Dates: start: 20070830, end: 20070901
  92. PERFALGAN [Concomitant]
     Dosage: UNK
     Route: 042
     Dates: start: 20070922, end: 20070922
  93. PERFALGAN [Concomitant]
     Dosage: UNK
     Route: 042
     Dates: start: 20070828, end: 20070828
  94. POTASSIUM CITRATE [Concomitant]
     Dosage: UNK
     Route: 042
     Dates: start: 20070902, end: 20070903
  95. SOLU-DECORTIN-H [Concomitant]
     Dosage: UNK
     Route: 042
     Dates: start: 20070906, end: 20070906
  96. PERENTEROL [Concomitant]
     Dosage: UNK
     Route: 048
     Dates: start: 20070916, end: 20070919

REACTIONS (1)
  - STEVENS-JOHNSON SYNDROME [None]
